FAERS Safety Report 7584699-7 (Version None)
Quarter: 2011Q2

REPORT INFORMATION
  Report Type: 
  Country: None (occurrence: None)
  Receive Date: 20110630
  Receipt Date: 20110617
  Transmission Date: 20111010
  Serious: Yes (Hospitalization, Other)
  Sender: FDA-Public Use
  Company Number: PHHY2011US42029

PATIENT
  Age: 42 Year
  Sex: Male

DRUGS (2)
  1. CLOZAPINE [Suspect]
     Indication: SCHIZOPHRENIA
     Dosage: 500 (200 IN AM AND 300 MG IN THE PM)
  2. CLOZAPINE [Suspect]
     Dosage: UNK

REACTIONS (6)
  - HALLUCINATION, AUDITORY [None]
  - PSYCHIATRIC DECOMPENSATION [None]
  - SCHIZOPHRENIA [None]
  - DROOLING [None]
  - ABNORMAL BEHAVIOUR [None]
  - SOLILOQUY [None]
